FAERS Safety Report 25847054 (Version 1)
Quarter: 2025Q3

REPORT INFORMATION
  Report Type: Spontaneous
  Country: US (occurrence: None)
  Receive Date: 20250923
  Receipt Date: 20250923
  Transmission Date: 20251021
  Serious: Yes (Hospitalization)
  Sender: FDA-CTU
  Company Number: None

PATIENT
  Sex: Male

DRUGS (8)
  1. GLATOPA [Suspect]
     Active Substance: GLATIRAMER ACETATE
     Indication: Multiple sclerosis
     Dosage: 20 MG DAILY SUBCUTNEOUS
     Route: 058
     Dates: start: 20250214
  2. VITAMIN B12 [Concomitant]
     Active Substance: CYANOCOBALAMIN
  3. CRANBERRY [Concomitant]
     Active Substance: CRANBERRY
  4. POTASSIUM [Concomitant]
     Active Substance: POTASSIUM
  5. LISINOPRIL [Concomitant]
     Active Substance: LISINOPRIL
  6. DULOXETINE HYDROCHLORIDE [Concomitant]
     Active Substance: DULOXETINE HYDROCHLORIDE
  7. CARBAMAZEPINE [Concomitant]
     Active Substance: CARBAMAZEPINE
  8. HYDROXYZINE HYDROCHLORIDE [Concomitant]
     Active Substance: HYDROXYZINE HYDROCHLORIDE

REACTIONS (4)
  - Influenza [None]
  - Pneumonia [None]
  - Cardio-respiratory arrest [None]
  - Tracheostomy [None]
